FAERS Safety Report 6836332-7 (Version None)
Quarter: 2010Q3

REPORT INFORMATION
  Report Type: 
  Country: None (occurrence: None)
  Receive Date: 20100713
  Receipt Date: 20090826
  Transmission Date: 20110219
  Serious: Yes (Hospitalization, Other)
  Sender: FDA-Public Use
  Company Number: JP-MERCK-0908USA04949

PATIENT
  Age: 41 Year
  Sex: Female
  Weight: 41 kg

DRUGS (6)
  1. PEPCID RPD [Suspect]
     Indication: GASTRITIS
     Route: 048
     Dates: start: 20090729, end: 20090813
  2. CIPROFLOXACIN HCL [Suspect]
     Indication: PNEUMONIA LEGIONELLA
     Route: 041
     Dates: start: 20090805, end: 20090813
  3. CLARITHROMYCIN [Suspect]
     Indication: PNEUMONIA LEGIONELLA
     Route: 048
     Dates: start: 20090808, end: 20090813
  4. AMBISOME [Suspect]
     Indication: PNEUMONIA LEGIONELLA
     Route: 041
     Dates: start: 20090804, end: 20090813
  5. DAUNORUBICIN HYDROCHLORIDE [Concomitant]
     Route: 065
     Dates: start: 20090730, end: 20090802
  6. CYLOCIDE [Concomitant]
     Route: 065
     Dates: start: 20090730, end: 20090802

REACTIONS (2)
  - PLATELET COUNT DECREASED [None]
  - PURPURA [None]
